FAERS Safety Report 21780639 (Version 3)
Quarter: 2023Q1

REPORT INFORMATION
  Report Type: Spontaneous
  Country: JP (occurrence: JP)
  Receive Date: 20221227
  Receipt Date: 20230318
  Transmission Date: 20230418
  Serious: Yes (Other)
  Sender: FDA-Public Use
  Company Number: JP-AMGEN-JPNSP2022224192

PATIENT
  Age: 75 Year
  Sex: Female

DRUGS (8)
  1. EVENITY [Suspect]
     Active Substance: ROMOSOZUMAB-AQQG
     Indication: Osteoporosis
     Dosage: 210 MILLIGRAM, QMO
     Route: 058
     Dates: start: 20220509
  2. EVENITY [Suspect]
     Active Substance: ROMOSOZUMAB-AQQG
  3. DENOSUMAB [Suspect]
     Active Substance: DENOSUMAB
     Indication: Product used for unknown indication
     Dosage: UNK
     Route: 065
  4. AMLODIPINE [Concomitant]
     Active Substance: AMLODIPINE BESYLATE
     Indication: Hypertension
     Dosage: 2.5 MILLIGRAM, QD
  5. SODIUM FERROUS CITRATE [Concomitant]
     Active Substance: SODIUM FERROUS CITRATE
     Indication: Anaemia
     Dosage: 50 MILLIGRAM, QD
  6. TELMISARTAN [Concomitant]
     Active Substance: TELMISARTAN
     Indication: Hypertension
     Dosage: 40 MILLIGRAM, QD
  7. LAMISIL [Concomitant]
     Active Substance: TERBINAFINE HYDROCHLORIDE
     Indication: Tinea infection
     Dosage: 125 MILLIGRAM, QD
  8. ROSUVASTATIN [Concomitant]
     Active Substance: ROSUVASTATIN
     Indication: Hyperlipidaemia
     Dosage: 2.5 MILLIGRAM, QD

REACTIONS (5)
  - Femur fracture [Not Recovered/Not Resolved]
  - Fall [Recovered/Resolved]
  - N-telopeptide urine increased [Unknown]
  - Therapeutic product ineffective [Unknown]
  - Rebound effect [Unknown]

NARRATIVE: CASE EVENT DATE: 20221022
